FAERS Safety Report 6410528-0 (Version None)
Quarter: 2009Q4

REPORT INFORMATION
  Report Type: 
  Country: None (occurrence: None)
  Receive Date: 20091022
  Receipt Date: 20091020
  Transmission Date: 20100525
  Serious: Yes (Hospitalization)
  Sender: FDA-Public Use
  Company Number: US-BRISTOL-MYERS SQUIBB COMPANY-14808778

PATIENT
  Age: 69 Year
  Sex: Male
  Weight: 62 kg

DRUGS (9)
  1. ERBITUX [Suspect]
     Indication: PROSTATE CANCER
     Dosage: 17JUN09-22SEP009, ON 24SEP09-PUT ON HOLD CYCLE 21
     Route: 042
     Dates: start: 20080617
  2. NOVANTRONE [Suspect]
     Indication: PROSTATE CANCER
     Route: 042
     Dates: start: 20080617
  3. PREDNISONE [Concomitant]
     Dosage: CYCLE 21
     Dates: start: 20080617
  4. TEMAZEPAM [Concomitant]
     Dosage: FREQUENCY: HS.
     Route: 048
  5. ASPIRIN [Concomitant]
     Route: 048
  6. CALCIUM [Concomitant]
     Dosage: 2 DF=2 TABS
     Route: 048
  7. HERBAL MIXTURE [Concomitant]
     Route: 048
  8. MULTI-VITAMIN [Concomitant]
     Dosage: 1 DF= 1 TAB
     Route: 048
  9. FISH OIL [Concomitant]
     Dosage: 1 DF= 1 TAB
     Route: 048

REACTIONS (1)
  - GASTROINTESTINAL HAEMORRHAGE [None]
